FAERS Safety Report 8637818 (Version 5)
Quarter: 2014Q1

REPORT INFORMATION
  Report Type: Spontaneous
  Country: US (occurrence: US)
  Receive Date: 20120627
  Receipt Date: 20140120
  Transmission Date: 20141002
  Serious: Yes (Hospitalization, Other)
  Sender: FDA-Public Use
  Company Number: US-ASTELLAS-2012US005643

PATIENT
  Age: 70 Year
  Sex: Female
  Weight: 80 kg

DRUGS (19)
  1. PROGRAF [Suspect]
     Indication: RENAL TRANSPLANT
     Dosage: 10 MG, UID/QD
     Route: 048
     Dates: start: 20091107
  2. PROGRAF [Suspect]
     Dosage: 5 MG, BID
     Route: 048
     Dates: start: 20090903
  3. PREDNISONE [Suspect]
     Indication: RENAL TRANSPLANT
     Dosage: 5 MG, UID/QD
     Route: 048
     Dates: start: 20090903
  4. GENGRAF [Concomitant]
     Indication: RENAL TRANSPLANT
     Dosage: UNK
     Route: 065
     Dates: start: 200909, end: 20091107
  5. CELLCEPT                           /01275102/ [Concomitant]
     Indication: RENAL TRANSPLANT
     Dosage: 500 MG, BID
     Route: 048
     Dates: start: 20090903
  6. INSULIN [Concomitant]
     Indication: DIABETES MELLITUS
     Dosage: UNK
     Route: 065
  7. DILTIAZEM [Concomitant]
     Indication: PRODUCT USED FOR UNKNOWN INDICATION
     Dosage: 120 MG, UID/QD
     Route: 048
  8. EFFEXOR [Concomitant]
     Indication: MOOD SWINGS
     Dosage: 150 MG, BID
     Route: 048
  9. METOPROLOL [Concomitant]
     Indication: PRODUCT USED FOR UNKNOWN INDICATION
     Dosage: 75 MG, BID
  10. ATORVASTATIN [Concomitant]
     Indication: PRODUCT USED FOR UNKNOWN INDICATION
     Dosage: 40 MG, UID/QD
     Route: 048
  11. MAGNESIUM OXIDE [Concomitant]
     Indication: PRODUCT USED FOR UNKNOWN INDICATION
     Dosage: 40 MG, TID
     Route: 048
  12. LEVOTHYROXINE [Concomitant]
     Indication: THYROID DISORDER
     Dosage: 125 MG, UID/QD
     Route: 048
  13. POTASSIUM CITRATE [Concomitant]
     Indication: NEPHROLITHIASIS
     Dosage: 180 MG, BID
     Route: 065
  14. OMEPRAZOLE [Concomitant]
     Indication: PRODUCT USED FOR UNKNOWN INDICATION
     Dosage: 20 MG, UID/QD
     Route: 065
  15. LORAZEPAM [Concomitant]
     Indication: ANXIETY
     Dosage: .5 MG, UID/QD
     Route: 065
  16. AMITRIPTYLINE [Concomitant]
     Indication: SLEEP DISORDER
     Dosage: UNK
     Route: 048
  17. MULTIVITAMIN                       /00097801/ [Concomitant]
     Indication: PRODUCT USED FOR UNKNOWN INDICATION
     Dosage: UNK
     Route: 048
  18. LANTUS [Concomitant]
     Indication: DIABETES MELLITUS
     Dosage: 37 UNK, UID/QD
     Route: 042
  19. OXYBUTYNIN [Concomitant]
     Indication: URINARY INCONTINENCE
     Dosage: 10 MG, UID/QD
     Route: 048

REACTIONS (22)
  - Tooth loss [Recovered/Resolved]
  - Nephrolithiasis [Unknown]
  - Spinal compression fracture [Unknown]
  - Fracture [Unknown]
  - Impaired healing [Not Recovered/Not Resolved]
  - Disease complication [Unknown]
  - Weight decreased [Unknown]
  - Urinary tract infection [Unknown]
  - Urinary tract infection bacterial [Unknown]
  - Infection [Unknown]
  - Mental disorder [Unknown]
  - Confusional state [Unknown]
  - Hip fracture [Unknown]
  - Cervical vertebral fracture [Not Recovered/Not Resolved]
  - Post procedural complication [Unknown]
  - Road traffic accident [Unknown]
  - Upper limb fracture [Unknown]
  - Osteoporosis [Not Recovered/Not Resolved]
  - Kidney transplant rejection [Unknown]
  - Fall [Unknown]
  - Fall [Unknown]
  - Gait disturbance [Unknown]
